FAERS Safety Report 9285017 (Version 1)
Quarter: 2013Q2

REPORT INFORMATION
  Report Type: Spontaneous
  Country: CA (occurrence: CA)
  Receive Date: 20130513
  Receipt Date: 20130513
  Transmission Date: 20140414
  Serious: Yes (Disabling, Other)
  Sender: FDA-Public Use
  Company Number: PHHY2013CA046652

PATIENT
  Age: 59 Year
  Sex: Female

DRUGS (2)
  1. FEMARA [Suspect]
     Dosage: 1 DF (2.5 MG), EVERY DAY
     Route: 048
  2. PREVACID [Concomitant]
     Dosage: UNK UKN, UNK

REACTIONS (6)
  - Angina pectoris [Recovered/Resolved]
  - Arthralgia [Recovered/Resolved]
  - Blood cholesterol increased [Recovered/Resolved]
  - Blood pressure increased [Recovered/Resolved]
  - Blood triglycerides increased [Recovered/Resolved]
  - Dyspnoea [Recovered/Resolved]
